FAERS Safety Report 9033099 (Version 2)
Quarter: 2013Q2

REPORT INFORMATION
  Report Type: Spontaneous
  Country: US (occurrence: US)
  Receive Date: 20130128
  Receipt Date: 20130401
  Transmission Date: 20140414
  Serious: No
  Sender: FDA-Public Use
  Company Number: US-PFIZER INC-2013005267

PATIENT
  Age: 49 Year
  Sex: Female
  Weight: 72.56 kg

DRUGS (2)
  1. PREMARIN VAGINAL CREAM [Suspect]
     Indication: VULVOVAGINAL DRYNESS
     Dosage: 0.5 G, 3X/WEEK (HS)
     Route: 067
     Dates: start: 20111020, end: 20120104
  2. HYDROCODONE [Concomitant]
     Dosage: UNK, AS NEEDED (PRN)

REACTIONS (2)
  - Product quality issue [Unknown]
  - Breast pain [Unknown]
